FAERS Safety Report 11005158 (Version 1)
Quarter: 2015Q2

REPORT INFORMATION
  Report Type: Spontaneous
  Country: US (occurrence: None)
  Receive Date: 20150408
  Receipt Date: 20150408
  Transmission Date: 20150821
  Serious: Yes (Hospitalization)
  Sender: FDA-Public Use
  Company Number: None

PATIENT
  Age: 65 Year
  Sex: Male

DRUGS (2)
  1. AMIODARONE [Suspect]
     Active Substance: AMIODARONE
     Indication: ATRIAL FIBRILLATION
     Dates: start: 20130715, end: 20131213
  2. AMIODARONE [Suspect]
     Active Substance: AMIODARONE
     Dates: start: 20130715, end: 20131213

REACTIONS (6)
  - Drug-induced liver injury [None]
  - Jaundice [None]
  - Chromaturia [None]
  - Transaminases increased [None]
  - Weight decreased [None]
  - Transient ischaemic attack [None]

NARRATIVE: CASE EVENT DATE: 20131125
